FAERS Safety Report 10979458 (Version 1)
Quarter: 2015Q2

REPORT INFORMATION
  Report Type: Spontaneous
  Country: PT (occurrence: PT)
  Receive Date: 20150402
  Receipt Date: 20150402
  Transmission Date: 20150821
  Serious: Yes (Hospitalization)
  Sender: FDA-Public Use
  Company Number: PT-BAYER-2015-067310

PATIENT
  Age: 62 Year
  Sex: Male

DRUGS (1)
  1. NEXAVAR [Suspect]
     Active Substance: SORAFENIB
     Indication: HEPATOCELLULAR CARCINOMA
     Dosage: UNK
     Dates: start: 201403, end: 2014

REACTIONS (7)
  - Pain in extremity [Recovering/Resolving]
  - Myopathy [Recovering/Resolving]
  - Pyrexia [Recovering/Resolving]
  - Myositis [Recovering/Resolving]
  - Myalgia [Recovering/Resolving]
  - Motor dysfunction [Recovering/Resolving]
  - Areflexia [Recovering/Resolving]

NARRATIVE: CASE EVENT DATE: 201407
